FAERS Safety Report 17004795 (Version 1)
Quarter: 2019Q4

REPORT INFORMATION
  Report Type: Report from Study
  Country: TR (occurrence: TR)
  Receive Date: 20191107
  Receipt Date: 20191107
  Transmission Date: 20200122
  Serious: Yes (Other)
  Sender: FDA-Public Use
  Company Number: TR-GILEAD-2019-0436063

PATIENT
  Age: 29 Year
  Sex: Female

DRUGS (1)
  1. TENOFOVIR DISOPROXIL FUMARATE. [Suspect]
     Active Substance: TENOFOVIR DISOPROXIL FUMARATE
     Indication: HEPATITIS B
     Dosage: 245 MG, QD
     Route: 065
     Dates: start: 2013

REACTIONS (15)
  - Nephrolithiasis [Unknown]
  - Arthralgia [Unknown]
  - Paraesthesia [Unknown]
  - Illusion [Unknown]
  - Fatigue [Unknown]
  - Abnormal behaviour [Unknown]
  - Hallucination [Unknown]
  - Nightmare [Unknown]
  - Respiratory distress [Unknown]
  - Resorption bone increased [Unknown]
  - Trichotillomania [Unknown]
  - Tension [Unknown]
  - Nervousness [Unknown]
  - Hypoaesthesia [Unknown]
  - Asthenia [Unknown]
